FAERS Safety Report 6920917-3 (Version None)
Quarter: 2010Q3

REPORT INFORMATION
  Report Type: 
  Country: None (occurrence: None)
  Receive Date: 20100812
  Receipt Date: 20100802
  Transmission Date: 20110219
  Serious: Yes (Other)
  Sender: FDA-Public Use
  Company Number: CO-JNJFOC-20100800862

PATIENT
  Age: 62 Year
  Sex: Male

DRUGS (1)
  1. REMICADE [Suspect]
     Indication: PSORIASIS
     Dosage: TOTAL OF 15 DOSES
     Route: 042

REACTIONS (1)
  - TUBERCULOSIS [None]
